FAERS Safety Report 7906884-4 (Version None)
Quarter: 2011Q4

REPORT INFORMATION
  Report Type: 
  Country: None (occurrence: None)
  Receive Date: 20111110
  Receipt Date: 20111103
  Transmission Date: 20120403
  Serious: Yes (Hospitalization)
  Sender: FDA-Public Use
  Company Number: DE-B.I. PHARMACEUTICALS,INC./RIDGEFIELD-2011-DE-03380DE

PATIENT
  Sex: Female
  Weight: 63 kg

DRUGS (5)
  1. RASILEZ [Concomitant]
     Dosage: 1 ANZ
     Route: 048
  2. CANDESARTAN CILEXETIL [Concomitant]
     Route: 048
  3. INEGY 10/20 [Concomitant]
     Route: 048
  4. PRADAXA [Suspect]
     Indication: ATRIAL FIBRILLATION
     Dosage: 150 MG
     Route: 048
     Dates: end: 20110531
  5. NOVODIGAL 0.2 [Concomitant]
     Route: 048

REACTIONS (2)
  - PERIPHERAL ARTERIAL OCCLUSIVE DISEASE [None]
  - MYALGIA [None]
